FAERS Safety Report 10397537 (Version 2)
Quarter: 2014Q3

REPORT INFORMATION
  Report Type: Spontaneous
  Country: US (occurrence: None)
  Receive Date: 20130815
  Receipt Date: 20140815
  Transmission Date: 20150326
  Serious: Yes (Other)
  Sender: FDA-Public Use
  Company Number: ADR-2013-00848

PATIENT
  Age: 43 Year
  Sex: Female

DRUGS (2)
  1. LIORESAL [Suspect]
     Active Substance: BACLOFEN
     Indication: MUSCLE SPASTICITY
  2. LIORESAL [Suspect]
     Active Substance: BACLOFEN
     Indication: CEREBRAL PALSY

REACTIONS (6)
  - Incorrect drug administration rate [None]
  - Hallucination [None]
  - Drug withdrawal syndrome [None]
  - Pruritus [None]
  - Underdose [None]
  - Muscle spasticity [None]

NARRATIVE: CASE EVENT DATE: 20130502
